FAERS Safety Report 5858774-9 (Version None)
Quarter: 2008Q3

REPORT INFORMATION
  Report Type: 
  Country: None (occurrence: None)
  Receive Date: 20080825
  Receipt Date: 20080812
  Transmission Date: 20090109
  Serious: Yes (Other)
  Sender: FDA-Public Use
  Company Number: 032508

PATIENT
  Age: 46 Year
  Sex: Female

DRUGS (1)
  1. VENLAFAXINE HYDROCHLORIDE [Suspect]
     Indication: DEPRESSION
     Dosage: 150 MG GRADUALLY REDUCED

REACTIONS (3)
  - ANORGASMIA [None]
  - DISTURBANCE IN SEXUAL AROUSAL [None]
  - LIBIDO INCREASED [None]
